FAERS Safety Report 7206184-4 (Version None)
Quarter: 2010Q4

REPORT INFORMATION
  Report Type: 
  Country: None (occurrence: None)
  Receive Date: 20101221
  Receipt Date: 20101216
  Transmission Date: 20110411
  Serious: Yes (Other)
  Sender: FDA-Public Use
  Company Number: AE-1210-401

PATIENT
  Age: 44 Year
  Sex: Female

DRUGS (14)
  1. LIDODERM [Suspect]
  2. OXYCONTIN [Suspect]
     Indication: BACK PAIN
     Dosage: 80 MG
  3. MORPHINE SULFATE [Suspect]
     Indication: BACK PAIN
  4. DIAZEPAM [Suspect]
     Indication: BACK PAIN
  5. VICODIN ES [Suspect]
  6. SOMA [Suspect]
  7. PARAFON FORTE [Suspect]
  8. ZANAFLEX [Suspect]
  9. KLONOPIN [Suspect]
  10. ATIVAN [Suspect]
  11. PHENERGAN HCL [Suspect]
  12. LEXAPRO [Suspect]
  13. RELAFEN [Suspect]
  14. NEURONTIN [Suspect]

REACTIONS (5)
  - INCORRECT DOSE ADMINISTERED [None]
  - LETHARGY [None]
  - OVERDOSE [None]
  - PAIN [None]
  - SOMNOLENCE [None]
